FAERS Safety Report 9077684 (Version 1)
Quarter: 2013Q1

REPORT INFORMATION
  Report Type: Report from Study
  Country: US (occurrence: US)
  Receive Date: 20130130
  Receipt Date: 20130130
  Transmission Date: 20140127
  Serious: No
  Sender: FDA-Public Use
  Company Number: US-ABBOTT-12P-163-0978167-00

PATIENT
  Age: 37 Year
  Sex: Female

DRUGS (2)
  1. HUMIRA [Suspect]
     Indication: CROHN^S DISEASE
     Dates: start: 20120906
  2. MICROGESTIN [Concomitant]
     Indication: CONTRACEPTION
     Dosage: 1 TAB DAILY

REACTIONS (1)
  - Injection site pain [Recovered/Resolved]
